FAERS Safety Report 19647566 (Version 1)
Quarter: 2021Q3

REPORT INFORMATION
  Report Type: Spontaneous
  Country: FR (occurrence: FR)
  Receive Date: 20210802
  Receipt Date: 20210802
  Transmission Date: 20211014
  Serious: Yes (Other)
  Sender: FDA-Public Use
  Company Number: FR-JNJFOC-20210755811

PATIENT
  Age: 45 Year
  Sex: Male
  Weight: 146 kg

DRUGS (3)
  1. XEPLION [Suspect]
     Active Substance: PALIPERIDONE PALMITATE
     Indication: SCHIZOPHRENIA
     Route: 030
     Dates: start: 20161215, end: 20200908
  2. XEPLION [Suspect]
     Active Substance: PALIPERIDONE PALMITATE
  3. XEPLION [Suspect]
     Active Substance: PALIPERIDONE PALMITATE

REACTIONS (6)
  - Androgen deficiency [Not Recovered/Not Resolved]
  - Loss of libido [Not Recovered/Not Resolved]
  - Weight increased [Not Recovered/Not Resolved]
  - Hyperprolactinaemia [Not Recovered/Not Resolved]
  - Diabetes mellitus [Not Recovered/Not Resolved]
  - Pituitary tumour benign [Not Recovered/Not Resolved]

NARRATIVE: CASE EVENT DATE: 201612
